FAERS Safety Report 13068301 (Version 1)
Quarter: 2016Q4

REPORT INFORMATION
  Report Type: Other
  Country: None (occurrence: AU)
  Receive Date: 20161228
  Receipt Date: 20161228
  Transmission Date: 20170207
  Serious: Yes (Death)
  Sender: FDA-Public Use
  Company Number: AU-GUERBET LLC-1061317

PATIENT
  Age: 55 Year
  Sex: Male

DRUGS (4)
  1. MITOMYCIN. [Concomitant]
     Active Substance: MITOMYCIN
  2. DOXORUBICIN (DOXORUBICIN) [Concomitant]
     Active Substance: DOXORUBICIN
  3. CISPLATIN. [Concomitant]
     Active Substance: CISPLATIN
  4. LIPIODOL [Suspect]
     Active Substance: ETHIODIZED OIL
     Indication: TRANSCATHETER ARTERIAL CHEMOEMBOLISATION

REACTIONS (2)
  - Off label use [Fatal]
  - Pancytopenia [Fatal]
